FAERS Safety Report 17353348 (Version 1)
Quarter: 2020Q1

REPORT INFORMATION
  Report Type: Spontaneous
  Country: NL (occurrence: NL)
  Receive Date: 20200131
  Receipt Date: 20200131
  Transmission Date: 20200409
  Serious: Yes (Life-Threatening, Other)
  Sender: FDA-Public Use
  Company Number: NL-TEVA-2020-NL-1178104

PATIENT
  Sex: Female
  Weight: 64 kg

DRUGS (2)
  1. NORTRIPTYLINE (NORTRIPTYLINE) [Suspect]
     Active Substance: NORTRIPTYLINE
     Indication: DEPRESSION
     Dosage: TABL 25MG, 1X DAILY, 3 TABL, 75 MG
     Dates: start: 2017, end: 20200103
  2. LACTULOSE. [Concomitant]
     Active Substance: LACTULOSE

REACTIONS (2)
  - Therapeutic response unexpected [Unknown]
  - Depression [Recovered/Resolved]
